FAERS Safety Report 5031472-X (Version None)
Quarter: 2006Q2

REPORT INFORMATION
  Report Type: 
  Country: None (occurrence: None)
  Receive Date: 20060504
  Receipt Date: 20060308
  Transmission Date: 20061013
  Serious: Yes (Hospitalization, Other)
  Sender: FDA-Public Use
  Company Number: SGB1-2006-00029

PATIENT
  Age: 87 Year
  Sex: Female

DRUGS (8)
  1. ANAGRELIDE HCL [Suspect]
     Indication: ESSENTIAL THROMBOCYTHAEMIA
     Dosage: SEE IMAGE
     Route: 048
     Dates: start: 20051201, end: 20051219
  2. BUSULFAN (BUSULFAN) [Concomitant]
  3. OMEPRAZOLE [Concomitant]
  4. AMLODIPINE [Concomitant]
  5. ATORVASTATIN CALCIUM [Concomitant]
  6. CALCICHEW D3 FORTE (CALCIUM CARBONATE) [Concomitant]
  7. ALENDRONATE SODIUM [Concomitant]
  8. CLOPIDOGREL [Concomitant]

REACTIONS (1)
  - MYOCARDIAL INFARCTION [None]
